FAERS Safety Report 20349686 (Version 1)
Quarter: 2022Q1

REPORT INFORMATION
  Report Type: Spontaneous
  Country: US (occurrence: None)
  Receive Date: 20220118
  Receipt Date: 20220118
  Transmission Date: 20220423
  Serious: Yes (Hospitalization)
  Sender: FDA-Public Use
  Company Number: None

PATIENT
  Sex: Female

DRUGS (27)
  1. PULMOZYME [Suspect]
     Active Substance: DORNASE ALFA
     Indication: Cystic fibrosis
     Dosage: OTHER QUANTITY : 2.5MG/2.5ML;?FREQUENCY : DAILY; VIA NEBULIZER?
     Route: 055
  2. ADULT AEROSOL MASK [Concomitant]
  3. ALBUTEROL [Concomitant]
     Active Substance: ALBUTEROL
  4. AMIKACIN INJ [Concomitant]
  5. AZITHROMYCIN [Concomitant]
     Active Substance: AZITHROMYCIN
  6. CREON CAP [Concomitant]
  7. DYCLONINE POW [Concomitant]
  8. EMBEDA [Concomitant]
     Active Substance: MORPHINE SULFATE\NALTREXONE HYDROCHLORIDE
  9. FLOVENT DISK [Concomitant]
  10. FLUTICASONE SPR [Concomitant]
  11. HYPER-SAL NEB [Concomitant]
  12. KITABIS PAK [Concomitant]
     Active Substance: TOBRAMYCIN
  13. MIRALAX POW [Concomitant]
  14. MULTIVITAMIN LIQ [Concomitant]
  15. NITROFUR MAC CAP [Concomitant]
  16. OMEPRAZOLE SODIUM [Concomitant]
     Active Substance: OMEPRAZOLE SODIUM
  17. OXYCODONE TAB [Concomitant]
  18. OXYCONTIN [Concomitant]
     Active Substance: OXYCODONE HYDROCHLORIDE
  19. PARI ADULT MASK [Concomitant]
  20. PROMETHAZINE HYDROCHLORIDE [Concomitant]
     Active Substance: PROMETHAZINE HYDROCHLORIDE
  21. PULMOZYME [Concomitant]
     Active Substance: DORNASE ALFA
  22. SODIUM CHLORIDE [Concomitant]
     Active Substance: SODIUM CHLORIDE
  23. STOOL SOFTNR CAP [Concomitant]
  24. TERRAMYCIN INJ [Concomitant]
  25. TRIKAFTA [Concomitant]
     Active Substance: ELEXACAFTOR\IVACAFTOR\TEZACAFTOR
  26. VALIUM TAB [Concomitant]
  27. ZITHROMAX TAB [Concomitant]

REACTIONS (5)
  - Dyspnoea [None]
  - Decreased appetite [None]
  - Illness [None]
  - Productive cough [None]
  - Therapy interrupted [None]
